FAERS Safety Report 6829475-5 (Version None)
Quarter: 2010Q3

REPORT INFORMATION
  Report Type: 
  Country: None (occurrence: None)
  Receive Date: 20100709
  Receipt Date: 20070406
  Transmission Date: 20110219
  Serious: Yes (Other)
  Sender: FDA-Public Use
  Company Number: US-PFIZER INC-2007004607

PATIENT
  Sex: Male
  Weight: 90.7 kg

DRUGS (7)
  1. CHANTIX [Suspect]
     Indication: SMOKING CESSATION THERAPY
     Route: 048
     Dates: start: 20070105
  2. ADVAIR DISKUS 100/50 [Concomitant]
     Route: 048
  3. ETANERCEPT [Concomitant]
     Indication: ANKYLOSING SPONDYLITIS
  4. AMBIEN [Concomitant]
     Route: 048
  5. METHADONE [Concomitant]
     Route: 048
  6. KLONOPIN [Concomitant]
     Route: 048
  7. ASACOL [Concomitant]
     Route: 048

REACTIONS (8)
  - HYPERPHAGIA [None]
  - IRRITABILITY [None]
  - NAUSEA [None]
  - OEDEMA PERIPHERAL [None]
  - SLEEP DISORDER [None]
  - TERMINAL INSOMNIA [None]
  - URTICARIA [None]
  - VOMITING [None]
